FAERS Safety Report 10128521 (Version 1)
Quarter: 2014Q2

REPORT INFORMATION
  Report Type: Spontaneous
  Country: US (occurrence: None)
  Receive Date: 20140424
  Receipt Date: 20140424
  Transmission Date: 20141212
  Serious: Yes (Hospitalization)
  Sender: FDA-Public Use
  Company Number: 2014HINLIT0367

PATIENT
  Age: 25 Year
  Sex: Male

DRUGS (9)
  1. LAMIVUDINE [Suspect]
     Indication: ANTIRETROVIRAL THERAPY
     Dates: start: 2007
  2. NEVIRAPINE [Suspect]
     Indication: ANTIRETROVIRAL THERAPY
     Dates: start: 2007
  3. STAVUDINE [Suspect]
     Indication: ANTIRETROVIRAL THERAPY
     Dates: start: 2007
  4. TENOFOVIR [Suspect]
     Indication: ANTIRETROVIRAL THERAPY
     Dates: start: 201009
  5. LOPINAVIR + RITONAVIR [Suspect]
     Indication: ANTIRETROVIRAL THERAPY
     Dates: start: 201009
  6. ISONIAZID (ISONIAZID) [Concomitant]
  7. RIFAMPIN (RIFAMPIN) [Concomitant]
  8. ETHAMBUTOL (ETHAMBUTOL) [Concomitant]
  9. PYRAZINAMIDE (PYRAZINAMIDE) [Concomitant]

REACTIONS (4)
  - Molluscum contagiosum [None]
  - Immune reconstitution inflammatory syndrome [None]
  - Virologic failure [None]
  - Superinfection bacterial [None]
